FAERS Safety Report 8781813 (Version 1)
Quarter: 2012Q4

REPORT INFORMATION
  Report Type: 
  Country: US (occurrence: US)
  Receive Date: 20120913
  Receipt Date: 20120913
  Transmission Date: 20130627
  Serious: Yes (Death, Other)
  Sender: FDA-Public Use
  Company Number: US-TEVA-357874USA

PATIENT
  Age: 69 Year
  Sex: Male

DRUGS (1)
  1. COPAXONE [Suspect]
     Indication: MULTIPLE SCLEROSIS
     Dates: start: 20051102, end: 20120825

REACTIONS (2)
  - Cardiac arrest [Fatal]
  - Blindness [Not Recovered/Not Resolved]
